FAERS Safety Report 21572877 (Version 1)
Quarter: 2022Q4

REPORT INFORMATION
  Report Type: Spontaneous
  Country: US (occurrence: US)
  Receive Date: 20221109
  Receipt Date: 20221109
  Transmission Date: 20230113
  Serious: Yes (Other)
  Sender: FDA-Public Use
  Company Number: US-PFIZER INC-202201283566

PATIENT
  Age: 65 Year
  Sex: Female

DRUGS (1)
  1. XELJANZ XR [Suspect]
     Active Substance: TOFACITINIB CITRATE
     Indication: Rheumatoid arthritis
     Dosage: APPROXIMATELY EVERY OTHER DAY
     Route: 048

REACTIONS (5)
  - Condition aggravated [Recovering/Resolving]
  - Swelling [Recovering/Resolving]
  - Dysphagia [Recovering/Resolving]
  - Product dose omission issue [Unknown]
  - Intentional product misuse [Unknown]
